FAERS Safety Report 7381490-1 (Version None)
Quarter: 2011Q1

REPORT INFORMATION
  Report Type: 
  Country: None (occurrence: None)
  Receive Date: 20110329
  Receipt Date: 20110321
  Transmission Date: 20110831
  Serious: Yes (Hospitalization)
  Sender: FDA-Public Use
  Company Number: SE-MERCK-1103SWE00016

PATIENT
  Age: 80 Year
  Sex: Female

DRUGS (9)
  1. HYPROMELLOSE [Concomitant]
     Route: 047
  2. PAROXETINE [Concomitant]
     Route: 048
  3. FOSAMAX [Suspect]
     Indication: OSTEOPOROSIS
     Route: 048
     Dates: start: 20070301, end: 20091201
  4. STRONTIUM RANELATE [Concomitant]
     Route: 048
  5. ACETAMINOPHEN [Concomitant]
     Route: 048
  6. ESTRIOL [Concomitant]
     Route: 048
  7. CALCIUM CARBONATE AND CHOLECALCIFEROL [Concomitant]
     Route: 065
  8. OMEPRAZOLE [Concomitant]
     Route: 048
  9. SIMETHICONE [Concomitant]
     Route: 048

REACTIONS (1)
  - PATHOLOGICAL FRACTURE [None]
